FAERS Safety Report 5133063-9 (Version None)
Quarter: 2006Q4

REPORT INFORMATION
  Report Type: 
  Country: None (occurrence: None)
  Receive Date: 20061017
  Receipt Date: 20061004
  Transmission Date: 20070319
  Serious: Yes (Death)
  Sender: FDA-Public Use
  Company Number: 2005100692

PATIENT
  Age: 23 Year
  Sex: Male
  Weight: 85 kg

DRUGS (5)
  1. ZYVOX [Suspect]
     Indication: BACTERAEMIA
     Dosage: 1200 MG (600 MG, 2 IN 1D), INTRAVENOUS
     Route: 042
     Dates: start: 20050709, end: 20050713
  2. URSO 250 [Concomitant]
  3. PROGRAF [Concomitant]
  4. EMTRICITABINE (EMTRICITABINE) [Concomitant]
  5. VIREAD [Concomitant]

REACTIONS (2)
  - HEPATIC CIRRHOSIS [None]
  - LACTIC ACIDOSIS [None]
